FAERS Safety Report 20766698 (Version 1)
Quarter: 2022Q2

REPORT INFORMATION
  Report Type: Spontaneous
  Country: CN (occurrence: CN)
  Receive Date: 20220429
  Receipt Date: 20220429
  Transmission Date: 20220720
  Serious: Yes (Other)
  Sender: FDA-Public Use
  Company Number: CN-SUN PHARMACEUTICAL INDUSTRIES LTD-2022R1-334327

PATIENT
  Age: 56 Year
  Sex: Female

DRUGS (8)
  1. OXALIPLATIN [Suspect]
     Active Substance: OXALIPLATIN
     Indication: Gastric cancer
     Dosage: 100 MILLIGRAM
     Route: 042
     Dates: end: 20210615
  2. PACLITAXEL [Suspect]
     Active Substance: PACLITAXEL
     Indication: Gastric cancer
     Dosage: 20 MG/M2 ON DAYS 1 AND 8, Q4WKS
     Route: 033
     Dates: start: 20210329, end: 20210615
  3. PACLITAXEL [Suspect]
     Active Substance: PACLITAXEL
     Dosage: 50 MG/M2 ON DAYS 1 AND 8
     Route: 042
     Dates: start: 20210329, end: 20210615
  4. APATINIB [Suspect]
     Active Substance: APATINIB
     Indication: Gastric cancer
     Dosage: 0.5 GRAM, QD, Q 3 WEEKS
     Route: 048
     Dates: start: 20210321, end: 20210615
  5. CAMRELIZUMAB [Suspect]
     Active Substance: CAMRELIZUMAB
     Indication: Gastric cancer
     Dosage: 200 MILLIGRAM Q3WKS
     Route: 042
     Dates: start: 20210315, end: 20210615
  6. GIMERACIL [Suspect]
     Active Substance: GIMERACIL
     Indication: Gastric cancer
     Dosage: 40 MILLIGRAM
     Route: 048
     Dates: start: 20210329, end: 20210615
  7. OTERACIL [Suspect]
     Active Substance: OTERACIL
     Indication: Gastric cancer
     Dosage: 40 MILLIGRAM
     Route: 048
     Dates: start: 20210329, end: 20210615
  8. TEGAFUR [Suspect]
     Active Substance: TEGAFUR
     Indication: Gastric cancer
     Dosage: 40 MILLIGRAM
     Route: 048
     Dates: start: 20210329, end: 20210615

REACTIONS (9)
  - Myelosuppression [Unknown]
  - Gastrointestinal haemorrhage [Unknown]
  - Fungal infection [Unknown]
  - Bacterial infection [Unknown]
  - Mouth ulceration [Unknown]
  - Rash [Unknown]
  - Urinary incontinence [Unknown]
  - Eastern Cooperative Oncology Group performance status worsened [Unknown]
  - Impaired quality of life [Unknown]

NARRATIVE: CASE EVENT DATE: 20210606
